FAERS Safety Report 21850388 (Version 1)
Quarter: 2023Q1

REPORT INFORMATION
  Report Type: Spontaneous
  Country: US (occurrence: None)
  Receive Date: 20230111
  Receipt Date: 20230111
  Transmission Date: 20230418
  Serious: Yes (Hospitalization)
  Sender: FDA-Public Use
  Company Number: None

PATIENT
  Sex: 0

DRUGS (2)
  1. STELARA [Suspect]
     Active Substance: USTEKINUMAB
  2. DEVICE [Suspect]
     Active Substance: DEVICE

REACTIONS (1)
  - Cardiac pacemaker insertion [None]
